FAERS Safety Report 25427113 (Version 1)
Quarter: 2025Q2

REPORT INFORMATION
  Report Type: Report from Study
  Country: CN (occurrence: CN)
  Receive Date: 20250612
  Receipt Date: 20250612
  Transmission Date: 20250716
  Serious: Yes (Death)
  Sender: ROCHE
  Company Number: CN-ROCHE-10000305726

PATIENT
  Age: 61 Year
  Sex: Male

DRUGS (1)
  1. GLOFITAMAB [Suspect]
     Active Substance: GLOFITAMAB
     Indication: Diffuse large B-cell lymphoma
     Route: 042

REACTIONS (4)
  - Blood potassium increased [Unknown]
  - Blood magnesium increased [Unknown]
  - Ill-defined disorder [Fatal]
  - Haematochezia [Fatal]

NARRATIVE: CASE EVENT DATE: 20250101
